FAERS Safety Report 6919498-X (Version None)
Quarter: 2010Q3

REPORT INFORMATION
  Report Type: 
  Country: None (occurrence: None)
  Receive Date: 20100729
  Receipt Date: 20100515
  Transmission Date: 20110219
  Serious: Yes (Other)
  Sender: FDA-Public Use
  Company Number: 2211100-US-JNJFOC-20100505010

PATIENT
  Age: 39 Year

DRUGS (1)
  1. IMODIUM [Suspect]
     Indication: SHORT-BOWEL SYNDROME
     Dosage: 5 IN 1 DAY, ORAL
     Route: 048

REACTIONS (1)
  - INTENTIONAL OVERDOSE [None]
